FAERS Safety Report 15747488 (Version 2)
Quarter: 2019Q1

REPORT INFORMATION
  Report Type: Report from Study
  Country: KR (occurrence: KR)
  Receive Date: 20181220
  Receipt Date: 20190125
  Transmission Date: 20190417
  Serious: Yes (Other)
  Sender: FDA-Public Use
  Company Number: KR-INCYTE CORPORATION-2018IN012061

PATIENT

DRUGS (7)
  1. JAKAVI [Suspect]
     Active Substance: RUXOLITINIB
     Indication: PRIMARY MYELOFIBROSIS
     Dosage: 15 MG, BID
     Route: 048
     Dates: start: 20180903
  2. LASIX [Concomitant]
     Active Substance: FUROSEMIDE
     Indication: PROPHYLAXIS
     Dosage: 20 MG/DAY
     Route: 042
     Dates: start: 20180903, end: 20180903
  3. LASIX [Concomitant]
     Active Substance: FUROSEMIDE
     Dosage: 20 MG/DAY
     Route: 042
     Dates: start: 20181001, end: 20181001
  4. PENIRAMIN [Concomitant]
     Indication: PROPHYLAXIS
     Dosage: 4 MG/DAY
     Route: 042
     Dates: start: 20180903, end: 20180903
  5. LASIX [Concomitant]
     Active Substance: FUROSEMIDE
     Dosage: 20 MG/DAY
     Route: 042
     Dates: start: 20181025, end: 20181025
  6. PENIRAMIN [Concomitant]
     Dosage: 4 MG/DAY
     Route: 042
     Dates: start: 20181001, end: 20181001
  7. PENIRAMIN [Concomitant]
     Dosage: 4 MG/DAY
     Route: 042
     Dates: start: 20181025, end: 20181025

REACTIONS (2)
  - Haemoglobin decreased [Not Recovered/Not Resolved]
  - Thrombocytopenia [Not Recovered/Not Resolved]

NARRATIVE: CASE EVENT DATE: 20181001
